FAERS Safety Report 8302301-3 (Version None)
Quarter: 2012Q2

REPORT INFORMATION
  Report Type: 
  Country: None (occurrence: None)
  Receive Date: 20120420
  Receipt Date: 20120413
  Transmission Date: 20120825
  Serious: Yes (Hospitalization, Other)
  Sender: FDA-Public Use
  Company Number: US-BAYER-2011-049297

PATIENT
  Age: 46 Year
  Sex: Female
  Weight: 130 kg

DRUGS (19)
  1. YAZ [Suspect]
     Indication: UTERINE CYST
     Dates: start: 20090501, end: 20090705
  2. MULTI-VITAMIN [Concomitant]
     Dosage: UNK
     Dates: start: 20090615
  3. LEVAQUIN [Concomitant]
     Indication: UPPER RESPIRATORY TRACT INFECTION
  4. LOSARTAN POTASSIUM [Concomitant]
  5. ADVAIR DISKUS 100/50 [Concomitant]
  6. CLARITIN [Concomitant]
  7. OXYGEN [Concomitant]
  8. YAZ [Suspect]
     Indication: UTERINE LEIOMYOMA
  9. ASCORBIC ACID [Concomitant]
     Dosage: UNK
     Dates: start: 20090615, end: 20090705
  10. ALBUTEROL [Concomitant]
     Indication: ASTHMA
  11. MIDRIN [Concomitant]
     Indication: MIGRAINE
     Dosage: UNK
     Dates: start: 20090601
  12. ALL OTHER THERAPEUTIC PRODUCTS [Concomitant]
     Dosage: UNK
     Dates: start: 20090615, end: 20090705
  13. BULK PRODUCERS [Concomitant]
     Dosage: UNK
     Dates: start: 20090615, end: 20090705
  14. NEXIUM [Concomitant]
     Indication: GASTROOESOPHAGEAL REFLUX DISEASE
  15. DIOVAN [Concomitant]
     Indication: HYPERTENSION
     Dosage: UNK
     Dates: start: 20090701
  16. AZITHROMYCIN [Concomitant]
     Indication: UPPER RESPIRATORY TRACT INFECTION
     Dosage: UNK
     Dates: start: 20090610, end: 20090615
  17. ADVAIR DISKUS 100/50 [Concomitant]
     Dosage: UNK
     Dates: start: 20090311
  18. OMEPRAZOLE [Concomitant]
     Dosage: UNK
     Dates: start: 20081201
  19. VICODIN [Concomitant]

REACTIONS (16)
  - CHEST PAIN [None]
  - INJURY [None]
  - EMOTIONAL DISTRESS [None]
  - GENERAL PHYSICAL HEALTH DETERIORATION [None]
  - PULMONARY EMBOLISM [None]
  - OEDEMA PERIPHERAL [None]
  - DYSPNOEA [None]
  - INSOMNIA [None]
  - THROMBOPHLEBITIS SUPERFICIAL [None]
  - PAIN [None]
  - FEAR [None]
  - PAIN IN EXTREMITY [None]
  - ANXIETY [None]
  - DEPRESSION [None]
  - TACHYCARDIA [None]
  - INTRACARDIAC THROMBUS [None]
